FAERS Safety Report 9473563 (Version 1)
Quarter: 2013Q3

REPORT INFORMATION
  Report Type: Spontaneous
  Country: US (occurrence: US)
  Receive Date: 20130823
  Receipt Date: 20130823
  Transmission Date: 20140515
  Serious: No
  Sender: FDA-Public Use
  Company Number: US-GALDERMA-US13001868

PATIENT
  Age: 53 Year
  Sex: Female
  Weight: 57 kg

DRUGS (6)
  1. METROGEL (METRONIDAZOLE) GEL, 1% [Suspect]
     Indication: PRODUCT USED FOR UNKNOWN INDICATION
     Dosage: 1%
     Route: 061
     Dates: start: 20130611
  2. TRI-LUMA CREAM (FLUOCINOLONE ACETONIDE 0.01%, HYDROQUINONE 4%, TRETINO [Suspect]
     Indication: ERYTHEMA
     Route: 061
     Dates: start: 20130610, end: 20130611
  3. NOXZEMA SKIN CLEANSER [Concomitant]
     Indication: THERAPEUTIC SKIN CARE TOPICAL
     Route: 061
  4. OILY OF OLAY MOISTURIZER FOR SENSITIVE SKIN WITH SUNSCREEN [Concomitant]
     Indication: DRY SKIN PROPHYLAXIS
     Route: 061
  5. HYDROCORTISONE VALERATE [Concomitant]
     Indication: ROSACEA
  6. HYDROCORTISONE VALERATE [Concomitant]
     Indication: ACNE

REACTIONS (3)
  - Skin discomfort [Recovered/Resolved]
  - Condition aggravated [Recovered/Resolved]
  - Off label use [Recovered/Resolved]
